FAERS Safety Report 20624721 (Version 1)
Quarter: 2022Q1

REPORT INFORMATION
  Report Type: Spontaneous
  Country: TW (occurrence: TW)
  Receive Date: 20220323
  Receipt Date: 20220323
  Transmission Date: 20220423
  Serious: Yes (Other)
  Sender: FDA-Public Use
  Company Number: TW-SUN PHARMACEUTICAL INDUSTRIES LTD-2022R1-330300

PATIENT
  Age: 62 Year
  Sex: Female

DRUGS (2)
  1. MIRTAZAPINE [Suspect]
     Active Substance: MIRTAZAPINE
     Indication: Systemic lupus erythematosus
     Dosage: UNK
     Route: 042
  2. MEFLOQUINE [Suspect]
     Active Substance: MEFLOQUINE
     Indication: Systemic lupus erythematosus
     Route: 042

REACTIONS (1)
  - Condition aggravated [Unknown]
